FAERS Safety Report 5713038-9 (Version None)
Quarter: 2008Q2

REPORT INFORMATION
  Report Type: 
  Country: None (occurrence: None)
  Receive Date: 20080422
  Receipt Date: 20080414
  Transmission Date: 20081010
  Serious: Yes (Hospitalization)
  Sender: FDA-Public Use
  Company Number: US-ASTRAZENECA-2008UW07608

PATIENT
  Sex: Female

DRUGS (2)
  1. NEXIUM [Suspect]
     Indication: GASTROOESOPHAGEAL REFLUX DISEASE
     Route: 048
     Dates: end: 20080413
  2. NEXIUM [Suspect]
     Indication: INTESTINAL FUNCTIONAL DISORDER
     Route: 048
     Dates: end: 20080413

REACTIONS (11)
  - CEREBROVASCULAR ACCIDENT [None]
  - CHEST PAIN [None]
  - DISORIENTATION [None]
  - DIZZINESS [None]
  - HEADACHE [None]
  - HYPOAESTHESIA [None]
  - NEUROLOGICAL SYMPTOM [None]
  - PARAESTHESIA [None]
  - SWELLING FACE [None]
  - TINNITUS [None]
  - VERTIGO [None]
